FAERS Safety Report 24687193 (Version 2)
Quarter: 2025Q1

REPORT INFORMATION
  Report Type: Spontaneous
  Country: BG (occurrence: BG)
  Receive Date: 20241202
  Receipt Date: 20250320
  Transmission Date: 20250409
  Serious: Yes (Hospitalization, Other)
  Sender: BRISTOL-MYERS SQUIBB COMPANY
  Company Number: BG-BRISTOL-MYERS SQUIBB COMPANY-2024-184240

PATIENT
  Age: 41 Year
  Sex: Male

DRUGS (4)
  1. OPDIVO [Suspect]
     Active Substance: NIVOLUMAB
     Indication: Adenocarcinoma gastric
     Route: 042
     Dates: start: 202408, end: 202412
  2. OPDIVO [Suspect]
     Active Substance: NIVOLUMAB
     Dates: start: 202412
  3. FLOT [Concomitant]
     Indication: Adenocarcinoma gastric
     Dates: start: 202408
  4. FLOT [Concomitant]
     Dates: start: 202412

REACTIONS (3)
  - Fatigue [Unknown]
  - Decreased appetite [Unknown]
  - Bone lesion [Recovering/Resolving]

NARRATIVE: CASE EVENT DATE: 20240916
